FAERS Safety Report 8301398 (Version 3)
Quarter: 2012Q4

REPORT INFORMATION
  Report Type: 
  Country: US (occurrence: US)
  Receive Date: 20111219
  Receipt Date: 20121031
  Transmission Date: 20130627
  Serious: Yes (Other)
  Sender: FDA-Public Use
  Company Number: US-RB-035464-11

PATIENT
  Sex: Female

DRUGS (2)
  1. SUBUTEX [Suspect]
     Indication: DRUG DEPENDENCE
     Route: 060
     Dates: start: 2010, end: 2011
  2. CANNABIS SATIVA SUBSP. INDICA TOP [Concomitant]
     Indication: INSOMNIA
     Dosage: Dosage details not provided
     Route: 065

REACTIONS (4)
  - Abortion spontaneous [Recovered/Resolved]
  - Haemorrhage [Recovered/Resolved]
  - Physical assault [Recovered/Resolved]
  - Exposure during pregnancy [Recovered/Resolved]
